FAERS Safety Report 5683263-4 (Version None)
Quarter: 2008Q1

REPORT INFORMATION
  Report Type: 
  Country: None (occurrence: None)
  Receive Date: 20080326
  Receipt Date: 20080313
  Transmission Date: 20080703
  Serious: Yes (Hospitalization)
  Sender: FDA-Public Use
  Company Number: 2008S1004256

PATIENT
  Age: 59 Year
  Sex: Male
  Weight: 117.9352 kg

DRUGS (12)
  1. METHOTREXATE [Suspect]
     Indication: RHEUMATOID ARTHRITIS
     Dates: start: 20070911, end: 20080212
  2. HUMIRA [Suspect]
     Indication: RHEUMATOID ARTHRITIS
     Dosage: SUBCUTANEOUS
     Route: 058
     Dates: start: 20070911, end: 20080212
  3. CELECOXIB [Concomitant]
  4. VICODIN [Concomitant]
  5. LOVASTATIN [Concomitant]
  6. PREDNISONE [Concomitant]
  7. FOLIC ACID [Concomitant]
  8. FISH OIL [Concomitant]
  9. ATENOLOL [Concomitant]
  10. LISINOPRIL [Concomitant]
  11. ASPIRIN [Concomitant]
  12. VITAMIN CAP [Concomitant]

REACTIONS (2)
  - ABSCESS LIMB [None]
  - CELLULITIS [None]
